FAERS Safety Report 6208093-6 (Version None)
Quarter: 2009Q2

REPORT INFORMATION
  Report Type: 
  Country: None (occurrence: None)
  Receive Date: 20090529
  Receipt Date: 20090422
  Transmission Date: 20091009
  Serious: No
  Sender: FDA-Public Use
  Company Number: US-KINGPHARMUSA00001-K200900494

PATIENT
  Sex: Male
  Weight: 106.58 kg

DRUGS (9)
  1. FLECTOR [Suspect]
     Indication: OSTEOARTHRITIS
     Dosage: 1 PATCH, SINGLE
     Route: 061
     Dates: start: 20090421, end: 20090421
  2. TORADOL [Suspect]
     Indication: OSTEOARTHRITIS
     Dosage: UNK
     Route: 030
     Dates: start: 20090421, end: 20090421
  3. DICLOFENAC SODIUM [Concomitant]
     Indication: OSTEOARTHRITIS
  4. SIMVASTATIN [Concomitant]
     Dosage: 20 MG, QD
     Route: 048
  5. CITALOPRAM HYDROBROMIDE [Concomitant]
     Dosage: 20 MG, QD
     Route: 048
  6. AMBIEN [Concomitant]
     Dosage: 10 MG, QD
     Route: 048
  7. LISINOPRIL [Concomitant]
     Dosage: 10 MG, QD
     Route: 048
  8. ACTOS [Concomitant]
     Dosage: 15/850 BID,
     Route: 048
  9. JANUVIA [Concomitant]
     Dosage: 100 MG, QD
     Route: 048

REACTIONS (1)
  - VOMITING [None]
